FAERS Safety Report 9418761 (Version 2)
Quarter: 2013Q3

REPORT INFORMATION
  Report Type: Spontaneous
  Country: US (occurrence: US)
  Receive Date: 20130725
  Receipt Date: 20130807
  Transmission Date: 20140515
  Serious: No
  Sender: FDA-Public Use
  Company Number: US-PFIZER INC-2013213530

PATIENT
  Age: 50 Year
  Sex: Female
  Weight: 70.75 kg

DRUGS (8)
  1. XALKORI [Suspect]
     Indication: LUNG ADENOCARCINOMA
     Dosage: 250 MG, 2X/DAY
     Route: 048
     Dates: start: 20130619
  2. TRAMADOL HYDROCHLORIDE [Concomitant]
     Dosage: UNK, AS NEEDED
     Route: 048
  3. FIORICET [Concomitant]
     Dosage: AS NEEDED
     Route: 048
  4. PRILOSEC [Concomitant]
     Dosage: 40 MG, 2X/DAY (1 ORAL TWO TIMES DAILY)
     Route: 048
  5. COMBIVENT [Concomitant]
     Dosage: 2 DF, AS NEEDED
  6. XANAX [Concomitant]
     Dosage: 0.25 MG, AS NEEDED (ORAL AS NEEDED)
     Route: 048
  7. DILAUDID [Concomitant]
     Dosage: 4 MG, AS NEEDED (ORAL AS NEEDED)
     Route: 048
  8. COUMADIN [Concomitant]
     Dosage: 3 MG, 1X/DAY
     Route: 048

REACTIONS (11)
  - Diarrhoea [Unknown]
  - Flatulence [Unknown]
  - Abdominal pain upper [Unknown]
  - Oedema peripheral [Unknown]
  - Visual brightness [Unknown]
  - Visual impairment [Unknown]
  - Arthralgia [Unknown]
  - Night sweats [Unknown]
  - Dysgeusia [Unknown]
  - Decreased appetite [Unknown]
  - Fatigue [Unknown]
